FAERS Safety Report 10204283 (Version 6)
Quarter: 2015Q3

REPORT INFORMATION
  Report Type: Report from Study
  Country: US (occurrence: US)
  Receive Date: 20140529
  Receipt Date: 20150714
  Transmission Date: 20151125
  Serious: Yes (Hospitalization, Other)
  Sender: FDA-Public Use
  Company Number: US-BAYER-2013-148434

PATIENT
  Age: 54 Year
  Sex: Female
  Weight: 78 kg

DRUGS (15)
  1. ADEMPAS [Suspect]
     Active Substance: RIOCIGUAT
     Indication: COR PULMONALE CHRONIC
     Dosage: 0.5 MG, TID
     Route: 048
     Dates: start: 20131125
  2. ADEMPAS [Suspect]
     Active Substance: RIOCIGUAT
     Indication: PULMONARY ARTERIAL HYPERTENSION
     Dosage: 2.5 MG, TID
     Route: 048
     Dates: start: 20140325
  3. ADEMPAS [Suspect]
     Active Substance: RIOCIGUAT
     Indication: PULMONARY ARTERIAL HYPERTENSION
     Dosage: 1 MG, TID
     Route: 048
     Dates: start: 20140115
  4. ADEMPAS [Suspect]
     Active Substance: RIOCIGUAT
     Indication: PULMONARY ARTERIAL HYPERTENSION
     Dosage: 2 MG, TID
     Route: 048
     Dates: start: 20140228
  5. MACITENTAN [Concomitant]
     Active Substance: MACITENTAN
  6. WELCHOL [Concomitant]
     Active Substance: COLESEVELAM HYDROCHLORIDE
  7. ADEMPAS [Suspect]
     Active Substance: RIOCIGUAT
     Indication: PULMONARY ARTERIAL HYPERTENSION
     Dosage: 1 MG, TID
     Route: 048
     Dates: start: 20140106
  8. ADEMPAS [Suspect]
     Active Substance: RIOCIGUAT
     Indication: PULMONARY ARTERIAL HYPERTENSION
     Dosage: 1.5 MG, TID
     Route: 048
  9. ADEMPAS [Suspect]
     Active Substance: RIOCIGUAT
     Indication: PULMONARY ARTERIAL HYPERTENSION
     Dosage: 2 MG, TID
     Route: 048
     Dates: start: 20131126
  10. ADEMPAS [Suspect]
     Active Substance: RIOCIGUAT
     Indication: PULMONARY ARTERIAL HYPERTENSION
     Dosage: 2 MG, TID
     Route: 048
     Dates: start: 20140115
  11. ADEMPAS [Suspect]
     Active Substance: RIOCIGUAT
     Indication: PULMONARY ARTERIAL HYPERTENSION
     Dosage: 2.5 MG, TID
     Route: 048
  12. ADEMPAS [Suspect]
     Active Substance: RIOCIGUAT
     Indication: PULMONARY ARTERIAL HYPERTENSION
     Dosage: 1.5 MG, TID
     Route: 048
     Dates: start: 20140131
  13. ADEMPAS [Suspect]
     Active Substance: RIOCIGUAT
     Indication: PULMONARY ARTERIAL HYPERTENSION
     Dosage: 2.5 MG, TID
     Route: 048
  14. ADEMPAS [Suspect]
     Active Substance: RIOCIGUAT
     Indication: PULMONARY ARTERIAL HYPERTENSION
     Dosage: 2 MG, TID
  15. ADEMPAS [Suspect]
     Active Substance: RIOCIGUAT
     Indication: PULMONARY ARTERIAL HYPERTENSION
     Dosage: 2.5 MG, TID
     Route: 048

REACTIONS (52)
  - Device related infection [Unknown]
  - Heart rate increased [None]
  - Back pain [Unknown]
  - Adverse event [None]
  - Injection site erythema [None]
  - Application site laceration [Unknown]
  - Fall [Unknown]
  - Volvulus [None]
  - Headache [None]
  - Loss of consciousness [None]
  - Central venous catheter removal [None]
  - Cardiac disorder [None]
  - Staphylococcal infection [Unknown]
  - Abdominal pain [Unknown]
  - Feeling abnormal [None]
  - Injection site warmth [None]
  - Injection site swelling [None]
  - Injection site discharge [None]
  - Bronchitis [None]
  - Hospitalisation [None]
  - Pericardial effusion [None]
  - Fatigue [None]
  - Blood potassium decreased [None]
  - Injection site infection [None]
  - Pulmonary arterial hypertension [None]
  - Abnormal weight gain [None]
  - Hypophagia [None]
  - Infection [None]
  - Injection site pain [None]
  - Pain in jaw [None]
  - Injection site vesicles [None]
  - Fluid retention [None]
  - Device related infection [None]
  - Chest pain [None]
  - Vomiting [Unknown]
  - Oedema peripheral [None]
  - Injection site induration [None]
  - Nausea [None]
  - Rotator cuff syndrome [None]
  - Diarrhoea [Unknown]
  - Dyspnoea [None]
  - Dizziness [None]
  - Fatigue [Unknown]
  - Headache [Unknown]
  - Syncope [None]
  - Atrial tachycardia [None]
  - Gastrointestinal disorder [Unknown]
  - Hypotension [None]
  - Vomiting [None]
  - Pneumonia [None]
  - Blood pressure decreased [Unknown]
  - Urinary tract infection [None]

NARRATIVE: CASE EVENT DATE: 20131127
